FAERS Safety Report 15813223 (Version 1)
Quarter: 2019Q1

REPORT INFORMATION
  Report Type: Spontaneous
  Country: US (occurrence: US)
  Receive Date: 20190111
  Receipt Date: 20190111
  Transmission Date: 20190417
  Serious: No
  Sender: FDA-Public Use
  Company Number: US-SA-2019SA007282

PATIENT
  Sex: Male

DRUGS (10)
  1. KETOCONAZOLE. [Concomitant]
     Active Substance: KETOCONAZOLE
  2. LIDOCAINE. [Concomitant]
     Active Substance: LIDOCAINE
  3. DUPIXENT [Suspect]
     Active Substance: DUPILUMAB
     Dosage: 300 MG, QOW
     Route: 058
  4. CYCLOSPORINE. [Concomitant]
     Active Substance: CYCLOSPORINE
  5. GRISEOFULVIN. [Concomitant]
     Active Substance: GRISEOFULVIN
     Dosage: 250 MG
  6. EPIPEN [Concomitant]
     Active Substance: EPINEPHRINE
  7. CLOTRIMAZOLE. [Concomitant]
     Active Substance: CLOTRIMAZOLE
  8. MUPIROCIN. [Concomitant]
     Active Substance: MUPIROCIN
  9. TRIAMCINOLON [TRIAMCINOLONE] [Concomitant]
  10. PROAIR HFA [Concomitant]
     Active Substance: ALBUTEROL SULFATE

REACTIONS (1)
  - Product dose omission [Unknown]
